FAERS Safety Report 6971711-9 (Version None)
Quarter: 2010Q3

REPORT INFORMATION
  Report Type: 
  Country: None (occurrence: None)
  Receive Date: 20100908
  Receipt Date: 20091215
  Transmission Date: 20110219
  Serious: No
  Sender: FDA-Public Use
  Company Number: US-PFIZER INC-2009278108

PATIENT
  Sex: Male
  Weight: 122 kg

DRUGS (2)
  1. NARDIL [Suspect]
     Indication: OBSESSIVE-COMPULSIVE DISORDER
     Dates: end: 19850101
  2. NARDIL [Suspect]
     Indication: DEPRESSION

REACTIONS (2)
  - DRUG INEFFECTIVE [None]
  - SOMNOLENCE [None]
